FAERS Safety Report 4534452-3 (Version None)
Quarter: 2004Q4

REPORT INFORMATION
  Report Type: 
  Country: None (occurrence: None)
  Receive Date: 20041222
  Receipt Date: 20040812
  Transmission Date: 20050328
  Serious: No
  Sender: FDA-Public Use
  Company Number: US-BRISTOL-MYERS SQUIBB COMPANY-12670709

PATIENT
  Sex: Male

DRUGS (1)
  1. ZERIT [Suspect]
     Indication: HIV INFECTION
     Dosage: VIA G TUBE
     Route: 050

REACTIONS (1)
  - NAUSEA [None]
